FAERS Safety Report 9490475 (Version 1)
Quarter: 2013Q3

REPORT INFORMATION
  Report Type: Spontaneous
  Country: DE (occurrence: DE)
  Receive Date: 20130830
  Receipt Date: 20130830
  Transmission Date: 20140515
  Serious: Yes (Other)
  Sender: FDA-Public Use
  Company Number: DE-RANBAXY-2013R1-72542

PATIENT
  Age: 73 Year
  Sex: Male
  Weight: 96 kg

DRUGS (6)
  1. DOXYCYCLINE [Suspect]
     Indication: MYOSITIS
     Dosage: UNK
     Route: 048
     Dates: start: 20121012, end: 201301
  2. ACETAZOLAMID [Suspect]
     Indication: GLAUCOMA
     Dosage: UNK
     Route: 048
     Dates: start: 20121012, end: 201301
  3. CANDESARTAN [Concomitant]
     Indication: HYPERTENSION
     Dosage: UNK
     Route: 048
     Dates: start: 2011
  4. ASS [Concomitant]
     Indication: PRODUCT USED FOR UNKNOWN INDICATION
     Dosage: UNK
     Route: 048
  5. TAFLUPROST [Concomitant]
     Indication: OPEN ANGLE GLAUCOMA
     Dosage: 1 DF/DAY
     Route: 047
  6. PREDNISOLON [Concomitant]
     Indication: MYOSITIS
     Dosage: UNK
     Route: 048
     Dates: start: 20121012

REACTIONS (1)
  - Pancytopenia [Not Recovered/Not Resolved]
